FAERS Safety Report 9953452 (Version 2)
Quarter: 2014Q1

REPORT INFORMATION
  Report Type: Report from Study
  Country: US (occurrence: US)
  Receive Date: 20140304
  Receipt Date: 20140304
  Transmission Date: 20141002
  Serious: Yes (Hospitalization)
  Sender: FDA-Public Use
  Company Number: US-ABBVIE-12P-163-0991789-00

PATIENT
  Age: 73 Year
  Sex: Female
  Weight: 61.29 kg

DRUGS (6)
  1. HUMIRA [Suspect]
     Indication: CROHN^S DISEASE
     Dates: start: 20120910, end: 20120910
  2. HUMIRA [Suspect]
     Dates: start: 20120925, end: 201210
  3. HUMIRA [Suspect]
     Dates: start: 201212, end: 201301
  4. HUMIRA [Suspect]
     Dates: start: 201301
  5. ASACOL [Concomitant]
     Indication: CROHN^S DISEASE
     Dates: start: 2006
  6. NORVASC [Concomitant]
     Indication: HYPERTENSION
     Dates: start: 2009

REACTIONS (9)
  - Cellulitis [Recovered/Resolved]
  - Oedema peripheral [Not Recovered/Not Resolved]
  - Pain in extremity [Not Recovered/Not Resolved]
  - Erythema [Not Recovered/Not Resolved]
  - Oedema peripheral [Not Recovered/Not Resolved]
  - Pain in extremity [Not Recovered/Not Resolved]
  - Erythema [Not Recovered/Not Resolved]
  - Rectal haemorrhage [Recovered/Resolved]
  - Drug effect decreased [Not Recovered/Not Resolved]
